FAERS Safety Report 23284067 (Version 1)
Quarter: 2023Q4

REPORT INFORMATION
  Report Type: Report from Study
  Country: US (occurrence: US)
  Receive Date: 20231211
  Receipt Date: 20231211
  Transmission Date: 20240110
  Serious: Yes (Other)
  Sender: FDA-Public Use
  Company Number: US-JNJFOC-20231213613

PATIENT

DRUGS (3)
  1. REMICADE [Suspect]
     Active Substance: INFLIXIMAB
     Indication: Crohn^s disease
     Route: 041
  2. ADALIMUMAB [Suspect]
     Active Substance: ADALIMUMAB\ISOPROPYL ALCOHOL
     Indication: Crohn^s disease
     Route: 065
  3. CERTOLIZUMAB [Suspect]
     Active Substance: CERTOLIZUMAB
     Indication: Crohn^s disease
     Route: 065

REACTIONS (8)
  - Neoplasm malignant [Unknown]
  - Neuropathy peripheral [Unknown]
  - Infection [Unknown]
  - Infusion related reaction [Unknown]
  - Paradoxical drug reaction [Unknown]
  - Headache [Unknown]
  - Hypersensitivity [Unknown]
  - Adverse drug reaction [Unknown]
